FAERS Safety Report 5233484-X (Version None)
Quarter: 2007Q1

REPORT INFORMATION
  Report Type: 
  Country: None (occurrence: None)
  Receive Date: 20070206
  Receipt Date: 20070124
  Transmission Date: 20070707
  Serious: Yes (Other)
  Sender: FDA-Public Use
  Company Number: 235660

PATIENT
  Age: 74 Year
  Sex: Male

DRUGS (1)
  1. AVASTIN [Suspect]
     Indication: MACULAR DEGENERATION
     Dosage: UNK, UNK, INTRAVITREAL

REACTIONS (2)
  - CHOROIDAL NEOVASCULARISATION [None]
  - DETACHMENT OF RETINAL PIGMENT EPITHELIUM [None]
